FAERS Safety Report 15951245 (Version 1)
Quarter: 2019Q1

REPORT INFORMATION
  Report Type: Spontaneous
  Country: US (occurrence: US)
  Receive Date: 20190212
  Receipt Date: 20190212
  Transmission Date: 20190417
  Serious: Yes (Other)
  Sender: FDA-Public Use
  Company Number: US-PFIZER INC-2019050890

PATIENT
  Sex: Male

DRUGS (2)
  1. XANAX [Suspect]
     Active Substance: ALPRAZOLAM
     Dosage: UNK
     Dates: start: 1995
  2. XANAX [Suspect]
     Active Substance: ALPRAZOLAM
     Dosage: TAPER DOSE

REACTIONS (5)
  - Insomnia [Recovering/Resolving]
  - Dyskinesia [Unknown]
  - Withdrawal syndrome [Unknown]
  - Incorrect product administration duration [Unknown]
  - Hepatic cirrhosis [Unknown]

NARRATIVE: CASE EVENT DATE: 20190128
